FAERS Safety Report 20776785 (Version 1)
Quarter: 2022Q2

REPORT INFORMATION
  Report Type: Spontaneous
  Country: AU (occurrence: AU)
  Receive Date: 20220502
  Receipt Date: 20220502
  Transmission Date: 20220720
  Serious: Yes (Disabling, Other)
  Sender: FDA-Public Use
  Company Number: AU-Fresenius Kabi-FK202205018

PATIENT
  Age: 25 Year
  Sex: Female

DRUGS (4)
  1. ROPIVACAINE [Suspect]
     Active Substance: ROPIVACAINE
     Indication: Anaesthesia
  2. ROPIVACAINE [Suspect]
     Active Substance: ROPIVACAINE
     Dosage: UNKNOWN
     Route: 065
  3. FENTANYL [Suspect]
     Active Substance: FENTANYL
     Indication: Anaesthesia
  4. FENTANYL [Suspect]
     Active Substance: FENTANYL
     Dosage: UNKNOWN
     Route: 065

REACTIONS (2)
  - Deafness neurosensory [Recovered/Resolved with Sequelae]
  - Exposure during pregnancy [Recovered/Resolved]
